FAERS Safety Report 10079573 (Version 1)
Quarter: 2014Q2

REPORT INFORMATION
  Report Type: Spontaneous
  Country: GB (occurrence: GB)
  Receive Date: 20140415
  Receipt Date: 20140415
  Transmission Date: 20141212
  Serious: Yes (Other)
  Sender: FDA-Public Use
  Company Number: GB-PFIZER INC-2014100628

PATIENT
  Age: 17 Year
  Sex: Male
  Weight: 39.8 kg

DRUGS (1)
  1. TIGECYCLINE [Suspect]
     Dosage: 50 MG, UNK
     Route: 042
     Dates: start: 20140326, end: 20140329

REACTIONS (1)
  - Urticaria [Recovered/Resolved]
